FAERS Safety Report 21943648 (Version 1)
Quarter: 2023Q1

REPORT INFORMATION
  Report Type: Spontaneous
  Country: US (occurrence: US)
  Receive Date: 20230202
  Receipt Date: 20230202
  Transmission Date: 20230418
  Serious: Yes (Other)
  Sender: FDA-Public Use
  Company Number: US-002147023-NVSC2023US019140

PATIENT
  Sex: Male

DRUGS (1)
  1. PLUVICTO [Suspect]
     Active Substance: LUTETIUM LU-177 VIPIVOTIDE TETRAXETAN
     Indication: Product used for unknown indication
     Dosage: 200 MILLICURIE
     Route: 065
     Dates: start: 20230116, end: 20230116

REACTIONS (3)
  - Pancytopenia [Recovering/Resolving]
  - Deafness [Recovering/Resolving]
  - Asthenia [Recovering/Resolving]
